FAERS Safety Report 8628327 (Version 10)
Quarter: 2013Q2

REPORT INFORMATION
  Report Type: Report from Study
  Country: CA (occurrence: CA)
  Receive Date: 20120621
  Receipt Date: 20130417
  Transmission Date: 20140414
  Serious: Yes (Other)
  Sender: FDA-Public Use
  Company Number: PHHY2012CA027850

PATIENT
  Sex: Female

DRUGS (6)
  1. SANDOSTATIN LAR [Suspect]
     Indication: ACROMEGALY
     Dosage: 20 MG, UNK
     Route: 030
     Dates: start: 20120306
  2. SANDOSTATIN LAR [Suspect]
     Dosage: 30 MG, EVERY 4 WEEKS
     Route: 030
  3. SANDOSTATIN LAR [Suspect]
     Dosage: 40 MG, ONCE A MONTH
     Route: 030
     Dates: start: 20120315, end: 20120817
  4. SANDOSTATIN LAR [Suspect]
     Dosage: 40 MG, EVERY 4 WEEKS
     Route: 030
  5. SANDOSTATIN LAR [Suspect]
     Dosage: 40 MG, ONCE IN A MONTH
     Route: 030
  6. TRAZODONE [Concomitant]
     Dosage: UNK UKN, UNK

REACTIONS (15)
  - Pituitary tumour [Unknown]
  - Feeling jittery [Unknown]
  - Tremor [Unknown]
  - Anxiety [Unknown]
  - Frustration [Unknown]
  - Incorrect dose administered [Unknown]
  - Tinnitus [Unknown]
  - Paraesthesia [Unknown]
  - Muscle fatigue [Unknown]
  - Sleep disorder [Not Recovered/Not Resolved]
  - Blood glucose decreased [Unknown]
  - Blood glucose fluctuation [Unknown]
  - Alopecia [Not Recovered/Not Resolved]
  - Headache [Unknown]
  - Fatigue [Not Recovered/Not Resolved]
